FAERS Safety Report 21108944 (Version 9)
Quarter: 2023Q1

REPORT INFORMATION
  Report Type: Report from Study
  Country: JP (occurrence: JP)
  Receive Date: 20220721
  Receipt Date: 20230210
  Transmission Date: 20230417
  Serious: Yes (Hospitalization)
  Sender: FDA-Public Use
  Company Number: JP-ALNYLAM PHARMACEUTICALS, INC.-ALN-2022-002563

PATIENT

DRUGS (16)
  1. PATISIRAN SODIUM [Suspect]
     Active Substance: PATISIRAN SODIUM
     Indication: Product used for unknown indication
     Dosage: 0.3 MILLIGRAM/KILOGRAM, Q3W
     Route: 042
     Dates: start: 20210521, end: 20210521
  2. PATISIRAN SODIUM [Suspect]
     Active Substance: PATISIRAN SODIUM
     Dosage: 0.3 MILLIGRAM/KILOGRAM, Q3W
     Route: 042
     Dates: start: 20220804, end: 20220804
  3. PATISIRAN SODIUM [Suspect]
     Active Substance: PATISIRAN SODIUM
     Dosage: 0.3 MILLIGRAM/KILOGRAM, Q3W
     Route: 042
     Dates: start: 20220915
  4. DEXAMETHASONE [Concomitant]
     Active Substance: DEXAMETHASONE
     Indication: Prophylaxis
     Dosage: 9.9 MILLIGRAM
     Route: 042
     Dates: start: 20210521
  5. CHLORPHENIRAMINE MALEATE [Concomitant]
     Active Substance: CHLORPHENIRAMINE MALEATE
     Indication: Prophylaxis
     Dosage: 5 MILLIGRAM
     Route: 042
     Dates: start: 20210521
  6. FAMOTIDINE [Concomitant]
     Active Substance: FAMOTIDINE
     Indication: Prophylaxis
     Dosage: 20 MILLIGRAM
     Route: 042
     Dates: start: 20210521
  7. ACETAMINOPHEN [Concomitant]
     Active Substance: ACETAMINOPHEN
     Indication: Prophylaxis
     Dosage: 500 MILLIGRAM
     Route: 048
     Dates: start: 20210521
  8. EPLERENONE [Concomitant]
     Active Substance: EPLERENONE
     Indication: Hypertension
     Dosage: 50 MILLIGRAM, QD
     Route: 048
     Dates: start: 20200620
  9. BISOPROLOL [Concomitant]
     Active Substance: BISOPROLOL
     Indication: Cardiac failure
     Dosage: 0.625 MILLIGRAM, BID
     Route: 048
     Dates: start: 20201113
  10. VALSARTAN [Concomitant]
     Active Substance: VALSARTAN
     Indication: Hypertension
     Dosage: 40 MILLIGRAM, QD
     Route: 048
     Dates: start: 20210520
  11. VITAMINS [Concomitant]
     Active Substance: VITAMINS
     Indication: Vitamin supplementation
     Dosage: 1 GRAM, QD
     Route: 048
     Dates: start: 20210813
  12. DIFLUPREDNATE [Concomitant]
     Active Substance: DIFLUPREDNATE
     Indication: Eczema nummular
     Dosage: 0.2 GRAM, BID
     Route: 062
     Dates: start: 20210909
  13. FUROSEMIDE [Concomitant]
     Active Substance: FUROSEMIDE
     Indication: Cardiac failure
     Dosage: 20 MILLIGRAM, QD
     Route: 048
     Dates: start: 20220531
  14. DIPHENIDOL HYDROCHLORIDE [Concomitant]
     Active Substance: DIPHENIDOL HYDROCHLORIDE
     Indication: Dizziness
     Dosage: 25 MILLIGRAM, TID
     Route: 048
     Dates: start: 20220524
  15. ADENOSINE DISODIUM TRIPHOSPHATE [Concomitant]
     Indication: Dizziness
     Dosage: UNK UNK, TID
     Route: 048
     Dates: start: 20220524
  16. CEFMETAZOLE SODIUM [Concomitant]
     Active Substance: CEFMETAZOLE SODIUM
     Indication: Hydrocele
     Dosage: 1 GRAM, BID
     Route: 042
     Dates: start: 20220704, end: 20220705

REACTIONS (1)
  - Sinus node dysfunction [Recovered/Resolved]

NARRATIVE: CASE EVENT DATE: 20220714
